FAERS Safety Report 21471452 (Version 1)
Quarter: 2022Q4

REPORT INFORMATION
  Report Type: Spontaneous
  Country: US (occurrence: US)
  Receive Date: 20221018
  Receipt Date: 20221018
  Transmission Date: 20230113
  Serious: Yes (Life-Threatening, Hospitalization, Other)
  Sender: FDA-Public Use
  Company Number: US-TORRENT-00012047

PATIENT
  Age: 51 Year
  Sex: Female

DRUGS (1)
  1. SIROLIMUS [Suspect]
     Active Substance: SIROLIMUS
     Indication: Lung disorder
     Dosage: UNKNOWN
     Route: 065

REACTIONS (2)
  - Respiratory failure [Unknown]
  - Pulmonary embolism [Unknown]
